FAERS Safety Report 23796192 (Version 1)
Quarter: 2024Q2

REPORT INFORMATION
  Report Type: Report from Study
  Country: US (occurrence: None)
  Receive Date: 20240430
  Receipt Date: 20240430
  Transmission Date: 20240715
  Serious: Yes (Other)
  Sender: FDA-Public Use
  Company Number: 2024A095930

PATIENT
  Sex: Female
  Weight: 57 kg

DRUGS (14)
  1. TRUQAP [Suspect]
     Active Substance: CAPIVASERTIB
     Indication: Breast cancer female
     Route: 048
  2. PANTOPRAZOLE SODIUM [Concomitant]
     Active Substance: PANTOPRAZOLE SODIUM
  3. RESTASIS OPHTHALMIC [Concomitant]
  4. TRETINOIN EXTERNA [Concomitant]
  5. LEVOTHYROXINE SODIUM [Concomitant]
     Active Substance: LEVOTHYROXINE SODIUM
  6. DOCUSATE SODIUM [Concomitant]
     Active Substance: DOCUSATE SODIUM
  7. CITALOPRAM HYDROBROMIDE [Concomitant]
     Active Substance: CITALOPRAM HYDROBROMIDE
  8. BIOTIN [Concomitant]
     Active Substance: BIOTIN
  9. CALCITRIOL [Concomitant]
     Active Substance: CALCITRIOL
  10. ATORVASTATIN CALCIUM [Concomitant]
     Active Substance: ATORVASTATIN CALCIUM
  11. XGEVA [Concomitant]
     Active Substance: DENOSUMAB
  12. EPINEPHRINE [Concomitant]
     Active Substance: EPINEPHRINE
  13. FASLODEX [Concomitant]
     Active Substance: FULVESTRANT
  14. ONDANSETRON HYDROCHLORIDE [Concomitant]
     Active Substance: ONDANSETRON HYDROCHLORIDE

REACTIONS (3)
  - Diarrhoea [Not Recovered/Not Resolved]
  - Blood creatinine increased [Unknown]
  - Blood pressure decreased [Unknown]
